FAERS Safety Report 4817046-1 (Version None)
Quarter: 2005Q4

REPORT INFORMATION
  Report Type: 
  Country: None (occurrence: None)
  Receive Date: 20051101
  Receipt Date: 20051021
  Transmission Date: 20060501
  Serious: Yes (Death, Congenital Anomaly)
  Sender: FDA-Public Use
  Company Number: ES-GLAXOSMITHKLINE-B0398759A

PATIENT

DRUGS (1)
  1. MALARONE [Suspect]
     Indication: PROPHYLAXIS

REACTIONS (2)
  - DRUG EXPOSURE DURING PREGNANCY [None]
  - MENINGOCELE [None]
